FAERS Safety Report 6699564-7 (Version None)
Quarter: 2010Q2

REPORT INFORMATION
  Report Type: 
  Country: None (occurrence: None)
  Receive Date: 20100427
  Receipt Date: 20100427
  Transmission Date: 20101027
  Serious: Yes (Other)
  Sender: FDA-Public Use
  Company Number: None

PATIENT
  Age: 43 Year
  Sex: Female
  Weight: 86.1834 kg

DRUGS (1)
  1. AMLODIPINE BESYLATE [Suspect]
     Dosage: 10 ONCE DAILY PO
     Route: 048

REACTIONS (3)
  - BLOOD PRESSURE INADEQUATELY CONTROLLED [None]
  - BLOOD PRESSURE INCREASED [None]
  - PRODUCT QUALITY ISSUE [None]
